FAERS Safety Report 4870713-6 (Version None)
Quarter: 2005Q4

REPORT INFORMATION
  Report Type: 
  Country: None (occurrence: None)
  Receive Date: 20051228
  Receipt Date: 20041013
  Transmission Date: 20060501
  Serious: Yes (Death)
  Sender: FDA-Public Use
  Company Number: 2005-CZ-01440

PATIENT
  Age: 56 Year
  Sex: Male

DRUGS (3)
  1. DIAZEPAM [Suspect]
  2. MIRTAZAPINE [Suspect]
  3. SILDENAFIL [Suspect]

REACTIONS (1)
  - SUDDEN DEATH [None]
